FAERS Safety Report 26152200 (Version 1)
Quarter: 2025Q4

REPORT INFORMATION
  Report Type: Spontaneous
  Country: EU (occurrence: EU)
  Receive Date: 20251214
  Receipt Date: 20251214
  Transmission Date: 20260118
  Serious: Yes (Hospitalization, Other)
  Sender: MERCK SHARP & DOHME LLC
  Company Number: None

PATIENT
  Age: 69 Year
  Sex: Male
  Weight: 84 kg

DRUGS (6)
  1. KEYTRUDA [Suspect]
     Active Substance: PEMBROLIZUMAB
     Indication: Lung neoplasm malignant
     Dosage: 200 MG/21 DAYS
     Route: 042
     Dates: start: 20221007, end: 20251029
  2. INEGY 10 MG + 20 MG [Concomitant]
     Indication: Coronary artery disease
  3. DEXATON 8MG/2ML [Concomitant]
     Indication: Premedication
  4. WAVE [Concomitant]
     Indication: Premedication
  5. DIMETHINDENE MALEATE [Concomitant]
     Active Substance: DIMETHINDENE MALEATE
     Indication: Premedication
     Route: 042
  6. SALOSPIR 160 MG [Concomitant]
     Indication: Coronary artery disease

REACTIONS (3)
  - Pneumonitis [Unknown]
  - Colitis [Not Recovered/Not Resolved]
  - Intestinal perforation [Unknown]

NARRATIVE: CASE EVENT DATE: 20251103
